FAERS Safety Report 9074848 (Version 1)
Quarter: 2013Q1

REPORT INFORMATION
  Report Type: Spontaneous
  Country: US (occurrence: US)
  Receive Date: 20130129
  Receipt Date: 20130129
  Transmission Date: 20140127
  Serious: No
  Sender: FDA-Public Use
  Company Number: US-ABBOTT-12P-163-0932620-00

PATIENT
  Sex: Male
  Weight: 79 kg

DRUGS (4)
  1. LUPRON DEPOT 7.5 MG [Suspect]
     Indication: PROSTATE CANCER
     Route: 030
     Dates: start: 2011, end: 2012
  2. LUPRON DEPOT 45 MG [Suspect]
     Indication: PROSTATE CANCER
     Route: 030
     Dates: start: 201202
  3. BICALUTAMIDE [Concomitant]
     Indication: PROSTATE CANCER
  4. VITAMINS [Concomitant]
     Indication: VITAMIN SUPPLEMENTATION

REACTIONS (2)
  - Influenza like illness [Recovered/Resolved]
  - Anaemia [Unknown]
